FAERS Safety Report 6519669-0 (Version None)
Quarter: 2009Q4

REPORT INFORMATION
  Report Type: 
  Country: None (occurrence: None)
  Receive Date: 20091228
  Receipt Date: 20091217
  Transmission Date: 20100525
  Serious: Yes (Hospitalization)
  Sender: FDA-Public Use
  Company Number: JP-PFIZER INC-2009308718

PATIENT
  Age: 67 Year
  Sex: Female

DRUGS (45)
  1. MIGLITOL [Suspect]
     Indication: DIABETES MELLITUS
     Dosage: 50 MG, 3X/DAY
     Route: 048
     Dates: start: 20090419, end: 20090517
  2. NORVASC [Suspect]
     Indication: HYPERTENSION
     Dosage: 5 MG, 2X/DAY
     Route: 048
     Dates: start: 20090419, end: 20090518
  3. NORVASC [Suspect]
     Dosage: UNK
     Route: 048
     Dates: start: 19950101, end: 20090418
  4. ALDACTONE [Suspect]
     Indication: HYPERTENSION
     Dosage: UNK MG, UNK
     Route: 048
     Dates: start: 20090417, end: 20090518
  5. PLAVIX [Suspect]
     Indication: ANGINA PECTORIS
     Dosage: UNK
     Route: 048
     Dates: start: 20090416, end: 20090416
  6. PLAVIX [Suspect]
     Indication: PERCUTANEOUS CORONARY INTERVENTION
     Dosage: UNK MG, UNK
     Route: 048
     Dates: start: 20090417, end: 20090518
  7. ASPIRIN [Suspect]
     Indication: ANGINA PECTORIS
     Dosage: UNK MG, UNK
     Route: 048
     Dates: start: 20090415
  8. AMARYL [Suspect]
     Indication: DIABETES MELLITUS
     Dosage: UNK MG, UNK
     Route: 048
     Dates: start: 20090422, end: 20090517
  9. TAKEPRON [Suspect]
     Indication: GASTRITIS PROPHYLAXIS
     Dosage: 15 UNK, UNK
     Route: 048
     Dates: start: 20090415, end: 20090514
  10. MICARDIS [Suspect]
     Indication: HYPERTENSION
     Dosage: UNK MG, UNK
     Route: 048
     Dates: start: 20090415, end: 20090517
  11. COVERSYL [Suspect]
     Indication: HYPERTENSION
     Dosage: UNK MG, UNK
     Route: 048
     Dates: start: 20090416, end: 20090518
  12. CRESTOR [Suspect]
     Indication: HYPERCHOLESTEROLAEMIA
     Dosage: UNK MG, UNK
     Route: 048
     Dates: start: 20090415, end: 20090514
  13. SIGMART [Suspect]
     Indication: HYPERTENSION
     Dosage: 5 MG, 3X/DAY
     Route: 048
     Dates: start: 20090416, end: 20090518
  14. ARTIST [Suspect]
     Indication: HYPERTENSION
     Dosage: 2.5 MG, 2X/DAY
     Route: 048
     Dates: start: 20090419, end: 20090518
  15. ARTIST [Suspect]
     Dosage: UNK
     Route: 048
     Dates: start: 20090416, end: 20090418
  16. VEEN-F [Concomitant]
     Dosage: UNK
     Dates: start: 20090415, end: 20090420
  17. HEPARIN SODIUM [Concomitant]
     Dosage: UNK
     Dates: start: 20090415, end: 20090420
  18. HEPARIN SODIUM [Concomitant]
     Dosage: UNK
     Dates: start: 20090416, end: 20090416
  19. PANALDINE [Concomitant]
  20. PARIET [Concomitant]
  21. VOGLIBOSE [Concomitant]
  22. NU LOTAN [Concomitant]
  23. ADALAT CC [Concomitant]
  24. PURSENNID [Concomitant]
  25. MAGNESIUM OXIDE [Concomitant]
  26. SULPERAZON [Concomitant]
  27. ISOTONIC SOLUTIONS [Concomitant]
  28. CEFDINIR [Concomitant]
  29. NITROGLYCERIN [Concomitant]
     Dosage: UNK
     Dates: start: 20090415, end: 20090419
  30. ATROPINE [Concomitant]
  31. PRIMPERAN TAB [Concomitant]
  32. XYLOCAINE [Concomitant]
  33. IOPAMIDOL [Concomitant]
  34. ACETYLSALICYLIC ACID [Concomitant]
     Dosage: UNK
     Dates: start: 20090415
  35. CARVEDILOL [Concomitant]
     Dosage: UNK
     Dates: start: 20090416, end: 20090418
  36. BROTIZOLAM [Concomitant]
     Dosage: UNK
     Dates: start: 20090417, end: 20090417
  37. PENTAZOCINE [Concomitant]
     Dosage: UNK
     Dates: start: 20090417, end: 20090417
  38. INSULIN HUMAN [Concomitant]
     Dosage: UNK
     Dates: start: 20090417, end: 20090418
  39. GLYCERYL TRINITRATE [Concomitant]
     Dosage: UNK
     Dates: start: 20090415, end: 20090419
  40. NICORANDIL [Concomitant]
     Dosage: UNK
     Dates: start: 20090416, end: 20090518
  41. METOCLOPRAMIDE [Concomitant]
     Dosage: UNK
     Dates: start: 20090416, end: 20090416
  42. IOPAMIDOL [Concomitant]
     Dosage: UNK
     Dates: start: 20090416, end: 20090416
  43. GLUCOSE [Concomitant]
     Dosage: UNK
     Route: 051
     Dates: start: 20090415, end: 20090419
  44. LIDOCAINE HYDROCHLORIDE [Concomitant]
     Dosage: UNK
     Dates: start: 20090416, end: 20090416
  45. INVESTIGATIONAL DRUG [Concomitant]
     Dosage: UNK
     Dates: end: 20090416

REACTIONS (2)
  - DEVICE OCCLUSION [None]
  - LIVER FUNCTION TEST ABNORMAL [None]
